FAERS Safety Report 4765974-8 (Version None)
Quarter: 2005Q3

REPORT INFORMATION
  Report Type: 
  Country: None (occurrence: None)
  Receive Date: 20050908
  Receipt Date: 20050826
  Transmission Date: 20060218
  Serious: Yes (Hospitalization)
  Sender: FDA-Public Use
  Company Number: 200512356BCC

PATIENT
  Age: 66 Year
  Sex: Female
  Weight: 68.0396 kg

DRUGS (6)
  1. ALEVE [Suspect]
     Indication: ARTHRALGIA
     Dosage: 440 MG, ONCE, ORAL
     Route: 048
     Dates: start: 19981222
  2. CALCIUM GLUCONATE [Concomitant]
  3. CENTRUM [Concomitant]
  4. ST. JOSEPH [Concomitant]
  5. PRILOSEC [Concomitant]
  6. PREMARIN [Concomitant]

REACTIONS (14)
  - ADRENAL INSUFFICIENCY [None]
  - ANAEMIA [None]
  - ANISOCYTOSIS [None]
  - BLOOD GLUCOSE INCREASED [None]
  - CARDIAC DISORDER [None]
  - DIPLOPIA [None]
  - DRUG HYPERSENSITIVITY [None]
  - HYPOTHALAMO-PITUITARY DISORDERS [None]
  - LYMPHOCYTE COUNT DECREASED [None]
  - NEUTROPHIL PERCENTAGE INCREASED [None]
  - PUPILLARY REFLEX IMPAIRED [None]
  - PYREXIA [None]
  - SINUS TACHYCARDIA [None]
  - VISION BLURRED [None]
